FAERS Safety Report 18243331 (Version 1)
Quarter: 2020Q3

REPORT INFORMATION
  Report Type: Spontaneous
  Country: FR (occurrence: FR)
  Receive Date: 20200908
  Receipt Date: 20200908
  Transmission Date: 20201103
  Serious: Yes (Other)
  Sender: FDA-Public Use
  Company Number: FR-TEVA-2020-FR-1823896

PATIENT
  Age: 84 Year
  Sex: Female
  Weight: 68.2 kg

DRUGS (12)
  1. TRAMADOL BASE [Suspect]
     Active Substance: TRAMADOL
     Indication: PAIN
     Dosage: 200 MG X 2 / DAY, UNIT DOSE 400MG
     Route: 048
  2. LAMALINE (CAFFEINE\PARACETAMOL\ATROPA BELLADONNA EXTRACT\PAPAVER SOMNIFERUM TINCTURE) [Suspect]
     Active Substance: ACETAMINOPHEN\BELLADONNA LEAF\CAFFEINE\OPIUM
     Indication: PAIN
     Dosage: UNIT DOSE 2DF
     Route: 048
     Dates: end: 20200605
  3. INEXIUM [Suspect]
     Active Substance: ESOMEPRAZOLE
     Indication: PRODUCT USED FOR UNKNOWN INDICATION
     Dosage: 20 MG PER DAY, UNIT DOSE 1DF
     Route: 048
     Dates: end: 20200605
  4. BILASKA [Suspect]
     Active Substance: BILASTINE
     Indication: PRODUCT USED FOR UNKNOWN INDICATION
     Route: 048
     Dates: end: 20200605
  5. ALPRAZOLAM. [Suspect]
     Active Substance: ALPRAZOLAM
     Indication: PRODUCT USED FOR UNKNOWN INDICATION
     Dosage: UNIT DOSE 0.25MG
     Route: 048
     Dates: end: 20200605
  6. HYDROCHLOROTHIAZIDE. [Suspect]
     Active Substance: HYDROCHLOROTHIAZIDE
     Indication: HYPERTENSION
     Dosage: UNIT DOSE 25MG
     Route: 048
     Dates: end: 20200605
  7. KERLONE [Concomitant]
     Active Substance: BETAXOLOL HYDROCHLORIDE
  8. HYPERIUM [Concomitant]
     Active Substance: RILMENIDINE PHOSPHATE
  9. VOLTARENE (DICLOFENAC SODIUM) [Suspect]
     Active Substance: DICLOFENAC SODIUM
     Indication: PAIN
     Dosage: UNIT DOSE 1DF, EXTENDED RELEASE
     Route: 048
     Dates: start: 20200529, end: 20200605
  10. TOVIAZ [Suspect]
     Active Substance: FESOTERODINE FUMARATE
     Indication: PRODUCT USED FOR UNKNOWN INDICATION
     Dosage: UNIT DOSE 1DF
     Route: 048
     Dates: end: 20200605
  11. IRBESARTAN. [Concomitant]
     Active Substance: IRBESARTAN
  12. ZOLPIDEM [Suspect]
     Active Substance: ZOLPIDEM TARTRATE
     Indication: PRODUCT USED FOR UNKNOWN INDICATION
     Dosage: UNIT DOSE 10MG
     Route: 048
     Dates: end: 20200605

REACTIONS (2)
  - Hallucination, visual [Recovered/Resolved]
  - Inappropriate antidiuretic hormone secretion [Recovered/Resolved]

NARRATIVE: CASE EVENT DATE: 20200603
